FAERS Safety Report 18912621 (Version 4)
Quarter: 2021Q2

REPORT INFORMATION
  Report Type: Spontaneous
  Country: JP (occurrence: JP)
  Receive Date: 20210218
  Receipt Date: 20210415
  Transmission Date: 20210717
  Serious: Yes (Death, Other)
  Sender: FDA-Public Use
  Company Number: JP-GILEAD-2021-0516316

PATIENT
  Age: 86 Year
  Sex: Female
  Weight: 27.4 kg

DRUGS (4)
  1. VEKLURY [Suspect]
     Active Substance: REMDESIVIR
     Indication: COVID-19
     Dosage: 100 MG, QD
     Route: 041
     Dates: start: 20210122, end: 20210126
  2. TAZOPIPE [Suspect]
     Active Substance: PIPERACILLIN SODIUM\TAZOBACTAM SODIUM
     Indication: PNEUMONIA ASPIRATION
     Dosage: 2.25 G, QID
     Route: 041
     Dates: start: 20210122, end: 20210126
  3. HEPARIN SODIUM. [Concomitant]
     Active Substance: HEPARIN SODIUM
     Indication: COVID-19
     Dosage: 5000 IU, BID
     Route: 041
     Dates: start: 20210122, end: 20210126
  4. OMEPRAZOLE [OMEPRAZOLE SODIUM] [Suspect]
     Active Substance: OMEPRAZOLE SODIUM
     Indication: DIARRHOEA
     Dosage: 20 MG, BID
     Route: 042
     Dates: start: 20210123, end: 20210127

REACTIONS (3)
  - Diarrhoea [Recovering/Resolving]
  - COVID-19 pneumonia [Fatal]
  - Hepatic function abnormal [Not Recovered/Not Resolved]

NARRATIVE: CASE EVENT DATE: 20210123
